FAERS Safety Report 8576458-3 (Version None)
Quarter: 2012Q3

REPORT INFORMATION
  Report Type: 
  Country: None (occurrence: None)
  Receive Date: 20120725
  Receipt Date: 20120712
  Transmission Date: 20120928
  Serious: Yes (Other)
  Sender: FDA-Public Use
  Company Number: 12-518

PATIENT
  Age: 86 Year
  Sex: Male
  Weight: 70.29 kg

DRUGS (6)
  1. CRESTOR [Concomitant]
  2. MULTI-VITAMINS [Concomitant]
  3. CARVEDILOL [Concomitant]
  4. LEVOTHYROXINE SODIUM [Concomitant]
  5. COUMADIN [Concomitant]
  6. NAPROXEN SODIUM [Suspect]
     Indication: ARTHRITIS
     Dosage: 220MG / BID / PO
     Route: 048
     Dates: start: 20120702, end: 20120709

REACTIONS (2)
  - CHOKING [None]
  - FOREIGN BODY [None]
